FAERS Safety Report 4309531-6 (Version None)
Quarter: 2004Q1

REPORT INFORMATION
  Report Type: 
  Country: None (occurrence: None)
  Receive Date: 20040301
  Receipt Date: 20040224
  Transmission Date: 20041129
  Serious: No
  Sender: FDA-Public Use
  Company Number: TAP2004Q00234

PATIENT
  Age: 68 Year
  Sex: Female
  Weight: 68.0396 kg

DRUGS (5)
  1. PREVACID [Suspect]
     Indication: MYALGIA
     Dosage: 1 CARD, 1 IN 1 WK, PER ORAL
     Route: 048
     Dates: start: 20040223, end: 20040223
  2. ATIVAN [Concomitant]
  3. DIOVAN [Concomitant]
  4. MECLIZINE [Concomitant]
  5. HYOSCYAMINE (HYOSCYAMINE) [Concomitant]

REACTIONS (2)
  - DRUG INEFFECTIVE [None]
  - VISION BLURRED [None]
